FAERS Safety Report 21316778 (Version 5)
Quarter: 2022Q4

REPORT INFORMATION
  Report Type: Spontaneous
  Country: US (occurrence: US)
  Receive Date: 20220911
  Receipt Date: 20221209
  Transmission Date: 20230112
  Serious: No
  Sender: FDA-Public Use
  Company Number: US-SA-SAC20220819001105

PATIENT
  Age: 13 Year
  Sex: Female
  Weight: 61 kg

DRUGS (9)
  1. DUPIXENT [Suspect]
     Active Substance: DUPILUMAB
     Indication: Dermatitis allergic
     Dosage: 300 MG, QOW
     Route: 058
     Dates: start: 202007, end: 2022
  2. DUPIXENT [Suspect]
     Active Substance: DUPILUMAB
     Indication: Eczema
  3. EUCRISA [Concomitant]
     Active Substance: CRISABOROLE
  4. FLUOCINONIDE [Concomitant]
     Active Substance: FLUOCINONIDE
  5. PREDNISONE [Concomitant]
     Active Substance: PREDNISONE
     Dosage: 15 MG
  6. TACROLIMUS [Concomitant]
     Active Substance: TACROLIMUS
  7. HYDROCORTISONE ACETATE [Concomitant]
     Active Substance: HYDROCORTISONE ACETATE
  8. HYDROXYZINE HYDROCHLORIDE [Concomitant]
     Active Substance: HYDROXYZINE HYDROCHLORIDE
  9. RINVOQ [Concomitant]
     Active Substance: UPADACITINIB

REACTIONS (3)
  - Eczema [Not Recovered/Not Resolved]
  - Rash [Unknown]
  - Discomfort [Unknown]
